FAERS Safety Report 6370946-6 (Version None)
Quarter: 2009Q3

REPORT INFORMATION
  Report Type: 
  Country: None (occurrence: None)
  Receive Date: 20090923
  Receipt Date: 20071119
  Transmission Date: 20100115
  Serious: Yes (Hospitalization)
  Sender: FDA-Public Use
  Company Number: US-ASTRAZENECA-2006UW23175

PATIENT
  Age: 28300 Day
  Sex: Female
  Weight: 108 kg

DRUGS (20)
  1. SEROQUEL [Suspect]
     Indication: INSOMNIA
     Route: 048
     Dates: start: 20051111
  2. SEROQUEL [Suspect]
     Indication: DEPRESSION
     Route: 048
     Dates: start: 20051111
  3. SEROQUEL [Suspect]
     Indication: PERSONALITY DISORDER
     Route: 048
     Dates: start: 20051111
  4. SEROQUEL [Suspect]
     Indication: DEMENTIA
     Route: 048
     Dates: start: 20051111
  5. SEROQUEL [Suspect]
     Dosage: 25-50 MG
     Route: 048
     Dates: start: 20060307
  6. SEROQUEL [Suspect]
     Dosage: 25-50 MG
     Route: 048
     Dates: start: 20060307
  7. SEROQUEL [Suspect]
     Dosage: 25-50 MG
     Route: 048
     Dates: start: 20060307
  8. SEROQUEL [Suspect]
     Dosage: 25-50 MG
     Route: 048
     Dates: start: 20060307
  9. ALBUTEROL [Concomitant]
  10. LANTUS [Concomitant]
  11. ARICEPT [Concomitant]
  12. LEXAPRO [Concomitant]
  13. LORTAB [Concomitant]
  14. NORVASC [Concomitant]
  15. RISPERDAL [Concomitant]
  16. LASIX [Concomitant]
  17. PREVACID [Concomitant]
  18. PREDNISONE [Concomitant]
  19. ALLOPURINOL [Concomitant]
  20. GLYBURIDE [Concomitant]

REACTIONS (2)
  - HYPERGLYCAEMIA [None]
  - HYPOGLYCAEMIA [None]
